FAERS Safety Report 12584048 (Version 2)
Quarter: 2016Q3

REPORT INFORMATION
  Report Type: Report from Study
  Country: GR (occurrence: GR)
  Receive Date: 20160722
  Receipt Date: 20160804
  Transmission Date: 20161109
  Serious: Yes (Hospitalization)
  Sender: FDA-Public Use
  Company Number: GR-ABBVIE-16K-066-1679872-00

PATIENT
  Age: 76 Year
  Sex: Male
  Weight: 55 kg

DRUGS (3)
  1. CLONOTRIL [Concomitant]
     Indication: PRODUCT USED FOR UNKNOWN INDICATION
     Route: 048
  2. DUODOPA [Suspect]
     Active Substance: CARBIDOPA\LEVODOPA
     Indication: PARKINSON^S DISEASE
     Dosage: MORNING DOSE: 7ML, CONTINUOUS RATE: 3.3ML/HR, EXTRA DOSE: 2ML
     Route: 050
     Dates: start: 20140630
  3. CORTINEFF [Concomitant]
     Indication: ORTHOSTATIC HYPOTENSION
     Dates: start: 20160527

REACTIONS (8)
  - Gastrointestinal haemorrhage [Recovered/Resolved]
  - Haematochezia [Unknown]
  - Asthenia [Recovered/Resolved]
  - Hypotension [Unknown]
  - Syncope [Recovered/Resolved]
  - Strabismus [Recovered/Resolved]
  - Gastric ulcer [Recovered/Resolved]
  - Haematocrit decreased [Recovering/Resolving]

NARRATIVE: CASE EVENT DATE: 20160709
